FAERS Safety Report 7517071-6 (Version None)
Quarter: 2011Q2

REPORT INFORMATION
  Report Type: 
  Country: None (occurrence: None)
  Receive Date: 20110526
  Receipt Date: 20110526
  Transmission Date: 20111010
  Serious: No
  Sender: FDA-Public Use
  Company Number: None

PATIENT
  Age: 88 Year
  Sex: Male
  Weight: 90.7194 kg

DRUGS (1)
  1. DOXAZOSIN MESYLATE [Suspect]
     Indication: PROSTATIC DISORDER
     Dosage: ONE AT BEDTIME
     Dates: start: 20110303

REACTIONS (3)
  - DYSPNOEA [None]
  - PNEUMONIA [None]
  - HEART RATE IRREGULAR [None]
